FAERS Safety Report 11281460 (Version 1)
Quarter: 2015Q3

REPORT INFORMATION
  Report Type: Report from Study
  Country: ES (occurrence: ES)
  Receive Date: 20150717
  Receipt Date: 20150717
  Transmission Date: 20151125
  Serious: Yes (Other)
  Sender: FDA-Public Use
  Company Number: ES-SA-2015SA101957

PATIENT
  Age: 70 Year
  Sex: Female

DRUGS (6)
  1. DOXAZOSIN [Concomitant]
     Active Substance: DOXAZOSIN\DOXAZOSIN MESYLATE
  2. TELMISARTAN. [Concomitant]
     Active Substance: TELMISARTAN
  3. BISOPROLOL [Concomitant]
     Active Substance: BISOPROLOL
  4. ACENOCOUMAROL [Concomitant]
     Active Substance: ACENOCOUMAROL
  5. BROMAZEPAM [Concomitant]
     Active Substance: BROMAZEPAM
  6. DRONEDARONE [Suspect]
     Active Substance: DRONEDARONE
     Route: 065

REACTIONS (1)
  - Renal failure [Unknown]
